FAERS Safety Report 5890577-1 (Version None)
Quarter: 2008Q3

REPORT INFORMATION
  Report Type: 
  Country: None (occurrence: None)
  Receive Date: 20080922
  Receipt Date: 20080801
  Transmission Date: 20090109
  Serious: Yes (Hospitalization, Other)
  Sender: FDA-Public Use
  Company Number: PHBS2008AU05557

PATIENT
  Age: 60 Year
  Sex: Male

DRUGS (4)
  1. ZOLEDRONIC ACID [Suspect]
     Indication: SPINAL FRACTURE
  2. METFORMIN HCL [Concomitant]
     Dosage: 500 MG, BID
  3. SIMVASTATIN [Concomitant]
     Dosage: 40 MG DAILY
  4. CALCIUM CARBONATE [Concomitant]
     Dosage: 600 MG DAILY

REACTIONS (9)
  - ACUTE PULMONARY OEDEMA [None]
  - BLOOD 25-HYDROXYCHOLECALCIFEROL DECREASED [None]
  - CARDIAC FAILURE [None]
  - ECHOCARDIOGRAM ABNORMAL [None]
  - EJECTION FRACTION DECREASED [None]
  - HYPOCALCAEMIA [None]
  - LEFT VENTRICULAR DYSFUNCTION [None]
  - VENTRICULAR HYPOKINESIA [None]
  - VITAMIN D DEFICIENCY [None]
